FAERS Safety Report 21652558 (Version 2)
Quarter: 2023Q1

REPORT INFORMATION
  Report Type: Report from Study
  Country: US (occurrence: US)
  Receive Date: 20221128
  Receipt Date: 20230321
  Transmission Date: 20230417
  Serious: No
  Sender: FDA-Public Use
  Company Number: US-ABBVIE-21K-163-3886177-00

PATIENT
  Sex: Female

DRUGS (2)
  1. IMBRUVICA [Suspect]
     Active Substance: IBRUTINIB
     Indication: Chronic lymphocytic leukaemia
     Route: 048
     Dates: start: 20200818, end: 202008
  2. IMBRUVICA [Suspect]
     Active Substance: IBRUTINIB
     Indication: Chronic lymphocytic leukaemia
     Route: 048
     Dates: start: 202008

REACTIONS (11)
  - Eructation [Not Recovered/Not Resolved]
  - Gastrointestinal disorder [Recovering/Resolving]
  - Fungal infection [Unknown]
  - Respiratory disorder [Recovered/Resolved]
  - Nail disorder [Unknown]
  - Diarrhoea [Recovering/Resolving]
  - Onychomycosis [Recovering/Resolving]
  - Joint swelling [Recovering/Resolving]
  - Onychoclasis [Unknown]
  - Neuropathy peripheral [Unknown]
  - Cough [Recovered/Resolved]
